FAERS Safety Report 9699098 (Version 2)
Quarter: 2013Q4

REPORT INFORMATION
  Report Type: Spontaneous
  Country: US (occurrence: None)
  Receive Date: 20131112
  Receipt Date: 20131114
  Transmission Date: 20140711
  Serious: Yes (Other)
  Sender: FDA-Public Use
  Company Number: 2013037440

PATIENT
  Sex: Female
  Weight: 89 kg

DRUGS (28)
  1. HIZENTRA [Suspect]
     Indication: IMMUNODEFICIENCY COMMON VARIABLE
     Dosage: 8 G 2X/WEEK, ALTERNATES RIGHT SIDE OF ABDOMEN (TUESDAYS) ;LEFT SIDE OF ABDOMEN (FRIDAYS) VIA CHRONO PUMP 1 1/2 HR)?
     Route: 058
     Dates: start: 20130806, end: 20130806
  2. ESTRADIOL (ESTRADIOL) (GEL) [Concomitant]
  3. ACCOLATE (ZAFIRLUKAST) [Concomitant]
  4. ATROVENT HFA (IPRATROPIUM BROMIDE) [Concomitant]
  5. BYSTOLIC (NEBIVOLOL) [Concomitant]
  6. DIMETAPP ALLERGY (BROMFED) [Concomitant]
  7. FROVA (FROVATRIPTAN SUCCINATE MONOHYDRATE) [Concomitant]
  8. IMODIUM ADVANCED (IMODIUM/01493801/) [Concomitant]
  9. COLAZAL (BALSALAZIDE SODIUM) [Concomitant]
  10. LOMOTIL (LOMOTIL) [Concomitant]
  11. MYCELEX TROCHE (CLOTRIMAZOLE) [Concomitant]
  12. PHENERGAN WITH DEXTROMETHORPHAN (PHENERGAN W/DEXTROMETHORPHAN) [Concomitant]
  13. PREVACID (LANSOPRAZOLE) [Concomitant]
  14. PROVENTIL (SALBUTAMOL) [Concomitant]
  15. QVAR (BECLOMETASONE DIPROPIONATE) [Concomitant]
  16. SOMA (CARISOPRODOL) [Concomitant]
  17. TESSALON PERLES (BENZONATATE) [Concomitant]
  18. TYLENOL EXTRA STRENGTH (PARACETAMOL) [Concomitant]
  19. VITAMIN C (ASCORBIC ACID) [Concomitant]
  20. AZITHROMYCIN (AZITHROMYCIN) [Concomitant]
  21. CALCIUM VITAMIN D (CALCIUM WITH VITAMIN D) [Concomitant]
  22. CIPROFLOXACIN (CIPROFLOXACIN) [Concomitant]
  23. ELPPA COQ10 (UBIDECARENONE) [Concomitant]
  24. ECETOCONAZOLE (KETOCONAZOLE) [Concomitant]
  25. LEVOCARNITINE (LEVOCARNITINE) [Concomitant]
  26. MULTI VITAMIN WITH MINERALS VITAMIN D (MULTIVITAMINS WITH MINERALS) [Concomitant]
  27. PENICILLIN V POTASSIUM (PHENOXYMETHYLPENICILLIN POTASSIUM) [Concomitant]
  28. PROGESTERONE (PROGESTERONE) [Concomitant]

REACTIONS (7)
  - Infusion site erythema [None]
  - Infusion site pain [None]
  - Acrochordon [None]
  - Infusion site reaction [None]
  - Infusion site infection [None]
  - Migraine [None]
  - Infusion site warmth [None]
